FAERS Safety Report 5471292-5 (Version None)
Quarter: 2007Q3

REPORT INFORMATION
  Report Type: 
  Country: None (occurrence: None)
  Receive Date: 20070928
  Receipt Date: 20070917
  Transmission Date: 20080115
  Serious: Yes (Hospitalization, Other)
  Sender: FDA-Public Use
  Company Number: GB-PFIZER INC-2005124881

PATIENT
  Age: 58 Year
  Sex: Male

DRUGS (6)
  1. AMLODIPINE [Interacting]
     Indication: HYPERTENSION
     Dosage: FREQ:UNKNOWN
     Route: 065
  2. SIMVASTATIN [Interacting]
     Indication: HYPERCHOLESTEROLAEMIA
     Dosage: FREQ:UNKNOWN
     Route: 065
  3. WARFARIN SODIUM [Suspect]
     Indication: MITRAL VALVE REPLACEMENT
     Dosage: FREQ:UNKNOWN
     Route: 065
  4. BISOPROLOL [Concomitant]
     Indication: HYPERTENSION
     Dosage: FREQ:UNKNOWN
     Route: 065
  5. SPIRONOLACTONE [Concomitant]
     Dosage: FREQ:UNKNOWN
     Route: 065
  6. RAMIPRIL [Concomitant]
     Dosage: FREQ:UNKNOWN
     Route: 065

REACTIONS (4)
  - DRUG INTERACTION [None]
  - NEUROPATHY PERIPHERAL [None]
  - RECTAL HAEMORRHAGE [None]
  - RENAL FAILURE [None]
